FAERS Safety Report 8337109-6 (Version None)
Quarter: 2012Q2

REPORT INFORMATION
  Report Type: 
  Country: None (occurrence: None)
  Receive Date: 20120504
  Receipt Date: 20120426
  Transmission Date: 20120825
  Serious: Yes (Other)
  Sender: FDA-Public Use
  Company Number: PHHY2012BR036173

PATIENT
  Sex: Male

DRUGS (1)
  1. ONBREZ [Suspect]
     Dosage: 150 UG, UNK

REACTIONS (1)
  - METASTASIS [None]
